FAERS Safety Report 11658588 (Version 2)
Quarter: 2015Q4

REPORT INFORMATION
  Report Type: Report from Study
  Country: CA (occurrence: CA)
  Receive Date: 20151026
  Receipt Date: 20151104
  Transmission Date: 20160304
  Serious: Yes (Other)
  Sender: FDA-Public Use
  Company Number: PHHY2015CA136346

PATIENT
  Sex: Female

DRUGS (3)
  1. ACLASTA [Suspect]
     Active Substance: ZOLEDRONIC ACID
     Dosage: UNK
     Route: 042
     Dates: start: 20130913
  2. ACLASTA [Suspect]
     Active Substance: ZOLEDRONIC ACID
     Indication: OSTEOPOROSIS
     Dosage: 5 MG, UNK
     Route: 042
     Dates: start: 20120822
  3. ACLASTA [Suspect]
     Active Substance: ZOLEDRONIC ACID
     Dosage: UNK
     Route: 042
     Dates: start: 20141104, end: 20141104

REACTIONS (12)
  - Cough [Unknown]
  - Weight decreased [Unknown]
  - Decreased appetite [Unknown]
  - Pulmonary hilum mass [Unknown]
  - Breath sounds abnormal [Unknown]
  - Wheezing [Unknown]
  - Dyspnoea [Unknown]
  - Lung neoplasm malignant [Unknown]
  - Pulmonary mass [Unknown]
  - Mediastinal mass [Unknown]
  - Asthenia [Unknown]
  - Hypoxia [Unknown]
